FAERS Safety Report 9005170 (Version 1)
Quarter: 2013Q1

REPORT INFORMATION
  Report Type: Spontaneous
  Country: US (occurrence: None)
  Receive Date: 20130107
  Receipt Date: 20130107
  Transmission Date: 20140127
  Serious: No
  Sender: FDA-Public Use
  Company Number: None

PATIENT
  Sex: Male
  Weight: 58.51 kg

DRUGS (1)
  1. METADATE ER [Suspect]
     Dosage: 40 MG DAILY ORAL
     Route: 048
     Dates: start: 2005, end: 2007

REACTIONS (1)
  - Product quality issue [None]
